FAERS Safety Report 24046665 (Version 1)
Quarter: 2024Q3

REPORT INFORMATION
  Report Type: Spontaneous
  Country: US (occurrence: US)
  Receive Date: 20240703
  Receipt Date: 20240703
  Transmission Date: 20241016
  Serious: No
  Sender: ALEXION PHARMACEUTICALS
  Company Number: US-ALXN-202406USA001912US

PATIENT
  Sex: Male

DRUGS (2)
  1. ULTOMIRIS [Suspect]
     Active Substance: RAVULIZUMAB-CWVZ
     Indication: Product used for unknown indication
     Dosage: 3000 MILLIGRAM, SINGLE
     Route: 042
     Dates: start: 20221201, end: 20221201
  2. ULTOMIRIS [Suspect]
     Active Substance: RAVULIZUMAB-CWVZ
     Dosage: 3600 MILLIGRAM, EVERY 8 WEEKS
     Route: 042
     Dates: end: 20230209

REACTIONS (7)
  - Eyelid ptosis [Unknown]
  - Dysarthria [Unknown]
  - Fatigue [Unknown]
  - Dysphagia [Unknown]
  - Balance disorder [Unknown]
  - Muscular weakness [Unknown]
  - Dyspnoea [Unknown]
